FAERS Safety Report 15637657 (Version 1)
Quarter: 2018Q4

REPORT INFORMATION
  Report Type: Spontaneous
  Country: US (occurrence: US)
  Receive Date: 20181120
  Receipt Date: 20181120
  Transmission Date: 20190205
  Serious: No
  Sender: FDA-Public Use
  Company Number: US-JNJFOC-20180608313

PATIENT
  Sex: Male
  Weight: 105 kg

DRUGS (17)
  1. IMBRUVICA [Suspect]
     Active Substance: IBRUTINIB
     Indication: PRODUCT USED FOR UNKNOWN INDICATION
     Route: 048
     Dates: start: 20180221, end: 2018
  2. NIACIN. [Concomitant]
     Active Substance: NIACIN
  3. FOLIC ACID. [Concomitant]
     Active Substance: FOLIC ACID
  4. FISH OIL [Concomitant]
     Active Substance: FISH OIL
  5. TAMSULOSIN [Concomitant]
     Active Substance: TAMSULOSIN
  6. ENALAPRIL [Concomitant]
     Active Substance: ENALAPRIL
  7. METOPROLOL. [Concomitant]
     Active Substance: METOPROLOL
  8. GINKGO BILOBA EXTRACT [Concomitant]
     Active Substance: GINKGO
  9. CLOPIDOGREL [Concomitant]
     Active Substance: CLOPIDOGREL BISULFATE
  10. GARLIC. [Concomitant]
     Active Substance: GARLIC
  11. ASPRIN [Concomitant]
     Active Substance: ASPIRIN
  12. ALPRAZOLAM. [Concomitant]
     Active Substance: ALPRAZOLAM
  13. SIMVASTATIN. [Concomitant]
     Active Substance: SIMVASTATIN
  14. IMBRUVICA [Suspect]
     Active Substance: IBRUTINIB
     Indication: PRODUCT USED FOR UNKNOWN INDICATION
     Route: 048
     Dates: start: 20180420, end: 2018
  15. CYCLOBENZAPRINE. [Concomitant]
     Active Substance: CYCLOBENZAPRINE
  16. TRAMADOL. [Concomitant]
     Active Substance: TRAMADOL
  17. SPIRONOLACTONE. [Concomitant]
     Active Substance: SPIRONOLACTONE

REACTIONS (3)
  - Initial insomnia [Unknown]
  - Abdominal discomfort [Unknown]
  - Constipation [Not Recovered/Not Resolved]
